FAERS Safety Report 18954136 (Version 4)
Quarter: 2024Q4

REPORT INFORMATION
  Report Type: Spontaneous
  Country: RU (occurrence: RU)
  Receive Date: 20210301
  Receipt Date: 20241004
  Transmission Date: 20250115
  Serious: Yes (Hospitalization, Other)
  Sender: GLAXOSMITHKLINE
  Company Number: RU-GLAXOSMITHKLINE-RU2021EME054659

PATIENT

DRUGS (3)
  1. BENLYSTA [Suspect]
     Active Substance: BELIMUMAB
     Indication: Antiphospholipid syndrome
     Dosage: 10 MG/KG,  INFUSION
  2. BENLYSTA [Suspect]
     Active Substance: BELIMUMAB
     Dosage: 10 MG/KG, INFUSION
  3. ASPIRIN [Concomitant]
     Active Substance: ASPIRIN
     Indication: Systemic lupus erythematosus
     Dosage: UNK

REACTIONS (7)
  - Toxic epidermal necrolysis [Recovering/Resolving]
  - Rash [Recovered/Resolved]
  - Toxic skin eruption [Recovering/Resolving]
  - Skin exfoliation [Recovering/Resolving]
  - Disease recurrence [Recovered/Resolved]
  - Skin injury [Recovering/Resolving]
  - Hypersensitivity [Recovering/Resolving]
